FAERS Safety Report 5072659-X (Version None)
Quarter: 2006Q3

REPORT INFORMATION
  Report Type: 
  Country: None (occurrence: None)
  Receive Date: 20060807
  Receipt Date: 20060801
  Transmission Date: 20061208
  Serious: Yes (Hospitalization)
  Sender: FDA-Public Use
  Company Number: AT-GLAXOSMITHKLINE-B0433222A

PATIENT
  Age: 19 Year
  Sex: Female

DRUGS (2)
  1. AUGMENTIN [Suspect]
     Indication: ENDOCARDITIS
     Route: 065
     Dates: start: 20060708, end: 20060801
  2. CHINESE MEDICINE [Concomitant]
     Route: 065
     Dates: start: 20060724, end: 20060802

REACTIONS (1)
  - CHROMATURIA [None]
